FAERS Safety Report 8488117-6 (Version None)
Quarter: 2012Q3

REPORT INFORMATION
  Report Type: 
  Country: None (occurrence: None)
  Receive Date: 20120705
  Receipt Date: 20120625
  Transmission Date: 20120928
  Serious: Yes (Hospitalization)
  Sender: FDA-Public Use
  Company Number: US-BAYER-2011-075365

PATIENT
  Age: 31 Year
  Sex: Female
  Weight: 66 kg

DRUGS (6)
  1. MELOXICAM [Concomitant]
     Dosage: 7.5 MG, UNK
  2. RELAFEN [Concomitant]
  3. YASMIN [Suspect]
  4. LYRICA [Concomitant]
  5. CELEBREX [Concomitant]
  6. DROSPIRENONE AND ETHINYL ESTRADIOL [Suspect]
     Dosage: UNK
     Dates: start: 20100901, end: 20101101

REACTIONS (3)
  - PULMONARY EMBOLISM [None]
  - INJURY [None]
  - PAIN [None]
